FAERS Safety Report 4463139-0 (Version None)
Quarter: 2004Q3

REPORT INFORMATION
  Report Type: 
  Country: None (occurrence: None)
  Receive Date: 20040930
  Receipt Date: 20040920
  Transmission Date: 20050211
  Serious: Yes (Hospitalization)
  Sender: FDA-Public Use
  Company Number: US-JNJFOC-20040906669

PATIENT
  Age: 53 Year
  Sex: Female

DRUGS (8)
  1. DURAGESIC [Suspect]
     Route: 062
  2. DURAGESIC [Suspect]
     Route: 062
  3. DURAGESIC [Suspect]
     Route: 062
  4. DURAGESIC [Suspect]
     Dosage: AUG-2004: 100 UG/HR, 1 IN 72 HOURS
     Route: 062
  5. DURAGESIC [Suspect]
     Route: 062
  6. DURAGESIC [Suspect]
     Route: 062
  7. DURAGESIC [Suspect]
     Route: 062
  8. COUMADIN [Concomitant]
     Indication: THROMBOSIS
     Route: 049

REACTIONS (11)
  - ABDOMINAL PAIN [None]
  - CHILLS [None]
  - HYPERHIDROSIS [None]
  - INSOMNIA [None]
  - MEDICATION ERROR [None]
  - MUSCLE CRAMP [None]
  - NAUSEA [None]
  - PYREXIA [None]
  - RESTLESSNESS [None]
  - THROMBOSIS [None]
  - TRICHORRHEXIS [None]
